FAERS Safety Report 18157717 (Version 5)
Quarter: 2021Q4

REPORT INFORMATION
  Report Type: Spontaneous
  Country: US (occurrence: US)
  Receive Date: 20200817
  Receipt Date: 20211028
  Transmission Date: 20220303
  Serious: Yes (Hospitalization, Other)
  Sender: FDA-Public Use
  Company Number: US-GILEAD-2020-0489620

PATIENT
  Age: 34 Year
  Sex: Female
  Weight: 86.17 kg

DRUGS (115)
  1. VIREAD [Suspect]
     Active Substance: TENOFOVIR DISOPROXIL FUMARATE
     Indication: HIV infection
     Dosage: UNK
     Route: 065
     Dates: start: 2006, end: 2006
  2. VIREAD [Suspect]
     Active Substance: TENOFOVIR DISOPROXIL FUMARATE
     Dosage: UNK
     Route: 048
     Dates: start: 20120113, end: 20120625
  3. VIREAD [Suspect]
     Active Substance: TENOFOVIR DISOPROXIL FUMARATE
     Dosage: UNK
     Route: 048
     Dates: start: 20120113, end: 20120323
  4. TRUVADA [Suspect]
     Active Substance: EMTRICITABINE\TENOFOVIR DISOPROXIL FUMARATE
     Indication: HIV infection
     Dosage: UNK
     Route: 048
     Dates: start: 201203, end: 201610
  5. TRUVADA [Suspect]
     Active Substance: EMTRICITABINE\TENOFOVIR DISOPROXIL FUMARATE
     Dosage: UNK
     Route: 048
     Dates: start: 20161107, end: 20171112
  6. TRUVADA [Suspect]
     Active Substance: EMTRICITABINE\TENOFOVIR DISOPROXIL FUMARATE
     Dosage: UNK
     Route: 048
     Dates: start: 20180627, end: 20180827
  7. TRUVADA [Suspect]
     Active Substance: EMTRICITABINE\TENOFOVIR DISOPROXIL FUMARATE
     Dosage: UNK
     Route: 048
     Dates: start: 20171212, end: 20180827
  8. TRUVADA [Suspect]
     Active Substance: EMTRICITABINE\TENOFOVIR DISOPROXIL FUMARATE
     Dosage: UNK
     Route: 048
     Dates: start: 201106, end: 201112
  9. TRUVADA [Suspect]
     Active Substance: EMTRICITABINE\TENOFOVIR DISOPROXIL FUMARATE
     Dosage: UNK
     Route: 048
     Dates: start: 2006, end: 201112
  10. TRUVADA [Suspect]
     Active Substance: EMTRICITABINE\TENOFOVIR DISOPROXIL FUMARATE
     Dosage: UNK
     Route: 048
     Dates: start: 201106, end: 20180827
  11. TRUVADA [Suspect]
     Active Substance: EMTRICITABINE\TENOFOVIR DISOPROXIL FUMARATE
     Dosage: UNK
     Route: 065
     Dates: start: 2007, end: 201112
  12. TRUVADA [Suspect]
     Active Substance: EMTRICITABINE\TENOFOVIR DISOPROXIL FUMARATE
     Dosage: UNK
     Route: 065
     Dates: start: 20171212, end: 201809
  13. DESCOVY [Concomitant]
     Active Substance: EMTRICITABINE\TENOFOVIR ALAFENAMIDE FUMARATE
  14. NORVIR [Concomitant]
     Active Substance: RITONAVIR
  15. PREZCOBIX [Concomitant]
     Active Substance: COBICISTAT\DARUNAVIR ETHANOLATE
  16. PREZISTA [Concomitant]
     Active Substance: DARUNAVIR ETHANOLATE
  17. LORAZEPAM [Concomitant]
     Active Substance: LORAZEPAM
  18. GABAPENTIN [Concomitant]
     Active Substance: GABAPENTIN
  19. METRONIDAZOLE [Concomitant]
     Active Substance: METRONIDAZOLE
  20. OXYCODONE HYDROCHLORIDE [Concomitant]
     Active Substance: OXYCODONE HYDROCHLORIDE
  21. RITONAVIR [Concomitant]
     Active Substance: RITONAVIR
  22. LORATADINE [Concomitant]
     Active Substance: LORATADINE
  23. METHOCARBAMOL [Concomitant]
     Active Substance: METHOCARBAMOL
  24. TRAMADOL [Concomitant]
     Active Substance: TRAMADOL
  25. VANCOMYCIN [Concomitant]
     Active Substance: VANCOMYCIN
  26. AMBIEN [Concomitant]
     Active Substance: ZOLPIDEM TARTRATE
  27. ASPIRIN [Concomitant]
     Active Substance: ASPIRIN
  28. BUPRENORPHINE [Concomitant]
     Active Substance: BUPRENORPHINE
  29. BUPRENORPHINE\NALOXONE [Concomitant]
     Active Substance: BUPRENORPHINE\NALOXONE
  30. BUSPAR [Concomitant]
     Active Substance: BUSPIRONE HYDROCHLORIDE
  31. CELEBREX [Concomitant]
     Active Substance: CELECOXIB
  32. CLONIDINE [Concomitant]
     Active Substance: CLONIDINE
  33. COLACE [Concomitant]
     Active Substance: DOCUSATE SODIUM
  34. DEPO-PROVERA [Concomitant]
     Active Substance: MEDROXYPROGESTERONE ACETATE
  35. ECOTRIN [Concomitant]
     Active Substance: ASPIRIN
  36. FERROUS SULFATE [Concomitant]
     Active Substance: FERROUS SULFATE
  37. HYDROXYZINE PAMOATE [Concomitant]
     Active Substance: HYDROXYZINE PAMOATE
  38. IBUPROFEN [Concomitant]
     Active Substance: IBUPROFEN
  39. PERCOCET [Concomitant]
     Active Substance: ACETAMINOPHEN\OXYCODONE HYDROCHLORIDE
  40. DULOXETINE [Concomitant]
     Active Substance: DULOXETINE
  41. FOSAMAX [Concomitant]
     Active Substance: ALENDRONATE SODIUM
  42. TRAZODONE [Concomitant]
     Active Substance: TRAZODONE HYDROCHLORIDE
  43. VISTARIL [Concomitant]
     Active Substance: HYDROXYZINE PAMOATE
  44. XANAX [Concomitant]
     Active Substance: ALPRAZOLAM
  45. KLONOPIN [Concomitant]
     Active Substance: CLONAZEPAM
  46. LIBRIUM [Concomitant]
     Active Substance: CHLORDIAZEPOXIDE HYDROCHLORIDE
  47. REMERON [Concomitant]
     Active Substance: MIRTAZAPINE
  48. CYMBALTA [Concomitant]
     Active Substance: DULOXETINE HYDROCHLORIDE
  49. CELECOXIB [Concomitant]
     Active Substance: CELECOXIB
  50. ZYPREXA [Concomitant]
     Active Substance: OLANZAPINE
  51. PRISTIQ EXTENDED-RELEASE [Concomitant]
     Active Substance: DESVENLAFAXINE SUCCINATE
  52. EMTRIVA [Concomitant]
     Active Substance: EMTRICITABINE
  53. ASPIRIN\HYDROCODONE BITARTRATE [Concomitant]
     Active Substance: ASPIRIN\HYDROCODONE BITARTRATE
  54. OXYCODONE [Concomitant]
     Active Substance: OXYCODONE
  55. ASPIRIN [Concomitant]
     Active Substance: ASPIRIN
  56. HYDROXYZINE [Concomitant]
     Active Substance: HYDROXYZINE HYDROCHLORIDE
  57. MYTESI [Concomitant]
     Active Substance: CROFELEMER
  58. MECLIZINE HYDROCHLORIDE [Concomitant]
     Active Substance: MECLIZINE HYDROCHLORIDE
  59. ROBAXIN [Concomitant]
     Active Substance: METHOCARBAMOL
  60. ENOXAPARIN SODIUM [Concomitant]
     Active Substance: ENOXAPARIN SODIUM
  61. TEMAZEPAM [Concomitant]
     Active Substance: TEMAZEPAM
  62. BACTRIM [Concomitant]
     Active Substance: SULFAMETHOXAZOLE\TRIMETHOPRIM
  63. AUGMENTIN [Concomitant]
     Active Substance: AMOXICILLIN\CLAVULANATE POTASSIUM
  64. HYDROMORPHONE [Concomitant]
     Active Substance: HYDROMORPHONE
  65. BISACODYL [Concomitant]
     Active Substance: BISACODYL
  66. CEFAZOLIN [Concomitant]
     Active Substance: CEFAZOLIN
  67. PANTOPRAZOLE [Concomitant]
     Active Substance: PANTOPRAZOLE
  68. DEXTROSE [Concomitant]
     Active Substance: DEXTROSE
  69. MEGACE [Concomitant]
     Active Substance: MEGESTROL ACETATE
  70. ONDANSETRON [Concomitant]
     Active Substance: ONDANSETRON
  71. SENNOSIDES [Concomitant]
     Active Substance: SENNOSIDES
  72. METOPROLOL [Concomitant]
     Active Substance: METOPROLOL
  73. HYDRALAZINE [Concomitant]
     Active Substance: HYDRALAZINE HYDROCHLORIDE
  74. MAGNESIUM SULFATE [Concomitant]
     Active Substance: MAGNESIUM SULFATE
  75. MELATONIN [Concomitant]
     Active Substance: MELATONIN
  76. MIDAZOLAM APL [Concomitant]
  77. FENTANYL [Concomitant]
     Active Substance: FENTANYL
  78. CLINDAMYCIN [Concomitant]
     Active Substance: CLINDAMYCIN
  79. CHOLECALCIFEROL [Concomitant]
     Active Substance: CHOLECALCIFEROL
  80. CEFTRIAXONE [Concomitant]
     Active Substance: CEFTRIAXONE
  81. CLONAZEPAM [Concomitant]
     Active Substance: CLONAZEPAM
  82. LEVOFLOXACIN [Concomitant]
     Active Substance: LEVOFLOXACIN
  83. TETRACYCLINE [Concomitant]
     Active Substance: TETRACYCLINE
  84. LYRICA [Concomitant]
     Active Substance: PREGABALIN
  85. LINEZOLID [Concomitant]
     Active Substance: LINEZOLID
  86. ERYTHROMYCIN [Concomitant]
     Active Substance: ERYTHROMYCIN
  87. HALOPERIDOL [Concomitant]
     Active Substance: HALOPERIDOL
  88. LIDOCAINE [Concomitant]
     Active Substance: LIDOCAINE
  89. LIBRIUM [Concomitant]
     Active Substance: CHLORDIAZEPOXIDE HYDROCHLORIDE
  90. NEURONTIN [Concomitant]
     Active Substance: GABAPENTIN
  91. SEROQUEL [Concomitant]
     Active Substance: QUETIAPINE FUMARATE
  92. THIAMINE [Concomitant]
     Active Substance: THIAMINE
  93. ABILIFY [Concomitant]
     Active Substance: ARIPIPRAZOLE
  94. AZITHROMYCIN ANHYDROUS [Concomitant]
     Active Substance: AZITHROMYCIN ANHYDROUS
  95. OMEPRAZOLE [Concomitant]
     Active Substance: OMEPRAZOLE
  96. DIFLUCAN [Concomitant]
     Active Substance: FLUCONAZOLE
  97. CARAFATE [Concomitant]
     Active Substance: SUCRALFATE
  98. PEPCID AC [Concomitant]
     Active Substance: FAMOTIDINE
  99. ALUMINUM HYDROXIDE\DIMETHICONE\MAGNESIUM HYDROXIDE [Concomitant]
     Active Substance: ALUMINUM HYDROXIDE\DIMETHICONE\MAGNESIUM HYDROXIDE
  100. ASCORBIC ACID [Concomitant]
     Active Substance: ASCORBIC ACID
  101. TEGRETOL [Concomitant]
     Active Substance: CARBAMAZEPINE
  102. NYSTATIN [Concomitant]
     Active Substance: NYSTATIN
  103. CEFIXIME [Concomitant]
     Active Substance: CEFIXIME
  104. NAPROXEN [Concomitant]
     Active Substance: NAPROXEN
  105. METOCLOPRAMIDE [Concomitant]
     Active Substance: METOCLOPRAMIDE
  106. KEFLEX [Concomitant]
     Active Substance: CEPHALEXIN
  107. LODINE [Concomitant]
     Active Substance: ETODOLAC
  108. DIPHENHYDRAMINE [Concomitant]
     Active Substance: DIPHENHYDRAMINE
  109. NAPROXEN [Concomitant]
     Active Substance: NAPROXEN
  110. MINOCYCLINE [Concomitant]
     Active Substance: MINOCYCLINE HYDROCHLORIDE
  111. HIBICLENS [Concomitant]
     Active Substance: CHLORHEXIDINE GLUCONATE
  112. DEXTROSE [Concomitant]
     Active Substance: DEXTROSE
  113. FEXOFENADINE [Concomitant]
     Active Substance: FEXOFENADINE HYDROCHLORIDE
  114. DOXYCYCLINE [Concomitant]
     Active Substance: DOXYCYCLINE
  115. CANNABIS SATIVA SUBSP. INDICA TOP [Concomitant]
     Active Substance: CANNABIS SATIVA SUBSP. INDICA TOP

REACTIONS (19)
  - Fracture [Not Recovered/Not Resolved]
  - Osteoporosis [Not Recovered/Not Resolved]
  - Spinal fracture [Not Recovered/Not Resolved]
  - Hip fracture [Not Recovered/Not Resolved]
  - Arthralgia [Unknown]
  - Osteoarthritis [Unknown]
  - Bone demineralisation [Unknown]
  - Gait disturbance [Not Recovered/Not Resolved]
  - Pain [Not Recovered/Not Resolved]
  - Anxiety [Not Recovered/Not Resolved]
  - Renal impairment [Not Recovered/Not Resolved]
  - Joint dislocation [Unknown]
  - Road traffic accident [Unknown]
  - Joint injury [Unknown]
  - Depression [Not Recovered/Not Resolved]
  - Emotional distress [Unknown]
  - Fractured sacrum [Unknown]
  - Nephropathy [Unknown]
  - Skeletal injury [Unknown]

NARRATIVE: CASE EVENT DATE: 20060101
